FAERS Safety Report 8200181-8 (Version None)
Quarter: 2012Q1

REPORT INFORMATION
  Report Type: 
  Country: None (occurrence: None)
  Receive Date: 20120306
  Receipt Date: 20120222
  Transmission Date: 20120608
  Serious: Yes (Other)
  Sender: FDA-Public Use
  Company Number: 1209201

PATIENT
  Age: 77 Year
  Sex: Female
  Weight: 66 kg

DRUGS (11)
  1. METOCLOPRAMIDE [Concomitant]
  2. CYCLOPHOSPHAMIDE [Concomitant]
  3. FLUOROURACIL [Concomitant]
  4. PREDNISOLONE [Concomitant]
  5. EPIRUBICIN [Concomitant]
  6. DOCETAXEL [Suspect]
     Indication: BREAST CANCER
     Dosage: 160 MG MILLIGRAM(S), INTRAVENOUS
     Route: 042
     Dates: start: 20120111, end: 20120209
  7. LISINOPRIL AND HYDROCHLOROTHIAZIDE [Concomitant]
  8. (ACETYLSALICLIC ACID) [Concomitant]
  9. MIDAZOLAM [Concomitant]
  10. DEXAMETHASONE [Concomitant]
  11. GRANISETRON [Concomitant]

REACTIONS (2)
  - SKIN EXFOLIATION [None]
  - SWOLLEN TONGUE [None]
